FAERS Safety Report 24098327 (Version 1)
Quarter: 2024Q3

REPORT INFORMATION
  Report Type: Spontaneous
  Country: RO (occurrence: RO)
  Receive Date: 20240716
  Receipt Date: 20240716
  Transmission Date: 20241017
  Serious: Yes (Other)
  Sender: ELI LILLY AND CO
  Company Number: RO-ELI_LILLY_AND_COMPANY-RO202407005621

PATIENT
  Age: 69 Year
  Sex: Female

DRUGS (12)
  1. ABEMACICLIB [Suspect]
     Active Substance: ABEMACICLIB
     Indication: Hormone receptor positive HER2 negative breast cancer
     Dosage: 150 MG, DAILY
     Route: 065
     Dates: start: 202103, end: 202112
  2. ABEMACICLIB [Suspect]
     Active Substance: ABEMACICLIB
     Dosage: 150 MG, DAILY
     Route: 065
     Dates: start: 202104
  3. ABEMACICLIB [Suspect]
     Active Substance: ABEMACICLIB
     Dosage: 100 MG, UNKNOWN
     Route: 065
     Dates: start: 202112
  4. ABEMACICLIB [Suspect]
     Active Substance: ABEMACICLIB
     Dosage: 150 MG, DAILY
     Route: 065
     Dates: start: 202405
  5. ABEMACICLIB [Suspect]
     Active Substance: ABEMACICLIB
     Dosage: 150 MG, DAILY
     Route: 065
     Dates: start: 202406
  6. ABEMACICLIB [Suspect]
     Active Substance: ABEMACICLIB
     Dosage: 150 MG, DAILY
     Route: 065
     Dates: start: 202407
  7. FULVESTRANT [Suspect]
     Active Substance: FULVESTRANT
     Indication: Product used for unknown indication
     Dosage: 250 MG, 2/W (2 EVERY14 DAYS)
     Route: 030
     Dates: start: 202103
  8. FULVESTRANT [Suspect]
     Active Substance: FULVESTRANT
     Dosage: 250 MG, 2/W (2 EVERY14 DAYS)
     Route: 030
     Dates: start: 202104
  9. FULVESTRANT [Suspect]
     Active Substance: FULVESTRANT
     Dosage: 250 MG, 2/W (2 EVERY14 DAYS)
     Route: 030
     Dates: start: 202405
  10. FULVESTRANT [Suspect]
     Active Substance: FULVESTRANT
     Dosage: 250 MG, 2/W (2 EVERY14 DAYS)
     Route: 030
     Dates: start: 202406
  11. FULVESTRANT [Suspect]
     Active Substance: FULVESTRANT
     Dosage: 250 MG, 2/W (2 EVERY14 DAYS)
     Route: 030
     Dates: start: 202407
  12. DENOSUMAB [Concomitant]
     Active Substance: DENOSUMAB
     Indication: Product used for unknown indication
     Dosage: UNK
     Dates: start: 202205

REACTIONS (15)
  - Pericardial effusion [Recovered/Resolved]
  - Pleural effusion [Recovered/Resolved]
  - Malignant neoplasm progression [Recovered/Resolved]
  - Vasculitis [Recovered/Resolved]
  - Skin ulcer [Recovered/Resolved]
  - COVID-19 [Recovered/Resolved]
  - Dyspnoea [Recovered/Resolved]
  - Chest pain [Recovered/Resolved]
  - Weight decreased [Recovered/Resolved]
  - Dysphonia [Recovered/Resolved]
  - Oxygen saturation decreased [Recovered/Resolved]
  - Diarrhoea [Recovered/Resolved]
  - Infected skin ulcer [Recovered/Resolved]
  - Neutropenia [Recovered/Resolved]
  - Fatigue [Recovered/Resolved]

NARRATIVE: CASE EVENT DATE: 20210901
